FAERS Safety Report 17893594 (Version 1)
Quarter: 2020Q2

REPORT INFORMATION
  Report Type: Spontaneous
  Country: FR (occurrence: FR)
  Receive Date: 20200615
  Receipt Date: 20200615
  Transmission Date: 20200714
  Serious: Yes (Hospitalization)
  Sender: FDA-Public Use
  Company Number: FR-CADILA HEALTHCARE LIMITED-FR-ZYDUS-025392

PATIENT

DRUGS (8)
  1. ONDANSETRON [Suspect]
     Active Substance: ONDANSETRON
     Indication: PRODUCT USED FOR UNKNOWN INDICATION
     Dosage: UNK, UNK ()
     Route: 048
     Dates: start: 20180704, end: 20180718
  2. VANCOMYCINE [Suspect]
     Active Substance: VANCOMYCIN
     Indication: BRAIN EMPYEMA
     Dosage: UNK, UNK ()
     Route: 042
     Dates: start: 20180704, end: 20180718
  3. CEFOTAXIME SODIUM [Suspect]
     Active Substance: CEFOTAXIME SODIUM
     Indication: BRAIN EMPYEMA
     Dosage: 16 MILLIGRAM,16 G, QD,(INTERVAL :1 DAYS)
     Route: 042
     Dates: start: 20180704, end: 20180712
  4. LEVOFLOXACIN. [Suspect]
     Active Substance: LEVOFLOXACIN
     Indication: PRODUCT USED FOR UNKNOWN INDICATION
     Dosage: 1000 MILLIGRAM,1000 MG, QD,(INTERVAL :1 DAYS)
     Route: 048
     Dates: start: 20180712, end: 20180714
  5. TAVANIC [Suspect]
     Active Substance: LEVOFLOXACIN
     Indication: BRAIN EMPYEMA
     Dosage: 1000 MILLIGRAM,(INTERVAL :1 DAYS)
     Route: 048
     Dates: start: 20180712, end: 20180714
  6. KEPPRA [Suspect]
     Active Substance: LEVETIRACETAM
     Indication: SEIZURE
     Dosage: UNK, UNK ()
     Route: 048
     Dates: start: 20180706, end: 20180719
  7. CLAFORAN [Suspect]
     Active Substance: CEFOTAXIME SODIUM
     Indication: BRAIN EMPYEMA
     Dosage: 16 GRAM,(INTERVAL :1 DAYS)
     Route: 042
     Dates: start: 20180704, end: 20180712
  8. LANSOPRAZOLE. [Suspect]
     Active Substance: LANSOPRAZOLE
     Indication: PRODUCT USED FOR UNKNOWN INDICATION
     Dosage: UNK UNK, UNK ()
     Route: 048
     Dates: start: 20180704, end: 20180720

REACTIONS (3)
  - Face oedema [Recovered/Resolved]
  - Eosinophilia [Recovered/Resolved]
  - Rash maculo-papular [Recovered/Resolved]

NARRATIVE: CASE EVENT DATE: 20180713
